FAERS Safety Report 4288902-0 (Version None)
Quarter: 2004Q1

REPORT INFORMATION
  Report Type: 
  Country: None (occurrence: None)
  Receive Date: 20040209
  Receipt Date: 20040209
  Transmission Date: 20041129
  Serious: Yes (Hospitalization, Disabling, Other)
  Sender: FDA-Public Use
  Company Number: None

PATIENT
  Age: 18 Year
  Sex: Female
  Weight: 63.5036 kg

DRUGS (2)
  1. BIAXIN XL [Suspect]
     Indication: SINUSITIS
     Dosage: 1000 MG DAY ORAL
     Route: 048
     Dates: start: 20040108, end: 20040114
  2. SUDAFED S.A. [Concomitant]

REACTIONS (7)
  - ABNORMAL BEHAVIOUR [None]
  - AGITATION [None]
  - HEPATOTOXICITY [None]
  - INCOHERENT [None]
  - INSOMNIA [None]
  - LOGORRHOEA [None]
  - MANIA [None]
